FAERS Safety Report 21360589 (Version 4)
Quarter: 2022Q4

REPORT INFORMATION
  Report Type: Report from Study
  Country: US (occurrence: US)
  Receive Date: 20220921
  Receipt Date: 20221117
  Transmission Date: 20230113
  Serious: Yes (Hospitalization, Other)
  Sender: FDA-Public Use
  Company Number: US-BAYER-2022A128578

PATIENT
  Age: 56 Year
  Sex: Male

DRUGS (3)
  1. STIVARGA [Suspect]
     Active Substance: REGORAFENIB
     Indication: Colon cancer
     Dosage: UNK
     Dates: start: 20220818
  2. STIVARGA [Suspect]
     Active Substance: REGORAFENIB
     Indication: Colon cancer
     Dosage: 40 MG, QD
  3. STIVARGA [Suspect]
     Active Substance: REGORAFENIB
     Indication: Colon cancer
     Dosage: 80 MG, QD (FOR 21 DAYS ON, 7 DAYS OFF)
     Route: 048

REACTIONS (9)
  - Neuropathy peripheral [Recovering/Resolving]
  - Lymphadenopathy [Recovering/Resolving]
  - Back pain [Recovering/Resolving]
  - Renal failure [Unknown]
  - Renal atrophy [Unknown]
  - Nausea [Recovering/Resolving]
  - Arthralgia [Recovered/Resolved]
  - Drug intolerance [None]
  - Skin exfoliation [Unknown]
